FAERS Safety Report 23861987 (Version 1)
Quarter: 2024Q2

REPORT INFORMATION
  Report Type: Spontaneous
  Country: US (occurrence: None)
  Receive Date: 20240515
  Receipt Date: 20240515
  Transmission Date: 20240716
  Serious: No
  Sender: FDA-Public Use
  Company Number: None

PATIENT
  Age: 48 Year
  Sex: Female

DRUGS (9)
  1. AMBRISENTAN [Suspect]
     Active Substance: AMBRISENTAN
     Indication: Pulmonary hypertension
     Dosage: FREQUENCY : DAILY;?
     Route: 048
     Dates: start: 20220314
  2. SILDENAFIL [Concomitant]
  3. FUROSEMIDE [Concomitant]
     Active Substance: FUROSEMIDE
  4. TOPIRAMATE [Concomitant]
     Active Substance: TOPIRAMATE
  5. METFORMIN [Concomitant]
  6. NORCO [Concomitant]
  7. TYLENOL [Concomitant]
  8. MELATONIN [Concomitant]
  9. albuterol [Concomitant]

REACTIONS (2)
  - Pulmonary hypertension [None]
  - Intentional dose omission [None]

NARRATIVE: CASE EVENT DATE: 20240515
